FAERS Safety Report 11706469 (Version 3)
Quarter: 2015Q4

REPORT INFORMATION
  Report Type: Spontaneous
  Country: NZ (occurrence: NZ)
  Receive Date: 20151106
  Receipt Date: 20151208
  Transmission Date: 20160304
  Serious: Yes (Hospitalization, Other)
  Sender: FDA-Public Use
  Company Number: NZ-JNJFOC-20151103284

PATIENT
  Age: 68 Year
  Sex: Male
  Weight: 85.1 kg

DRUGS (4)
  1. ZYTIGA [Suspect]
     Active Substance: ABIRATERONE ACETATE
     Indication: HORMONE-REFRACTORY PROSTATE CANCER
     Route: 048
     Dates: start: 20150706, end: 20151001
  2. CAPECITABINE. [Interacting]
     Active Substance: CAPECITABINE
     Indication: GASTROINTESTINAL CARCINOMA
     Dosage: LOW DOSE
     Route: 048
  3. OXALIPLATIN. [Interacting]
     Active Substance: OXALIPLATIN
     Indication: COLORECTAL CANCER
     Route: 065
     Dates: start: 20150928
  4. CAPECITABINE. [Interacting]
     Active Substance: CAPECITABINE
     Indication: GASTROINTESTINAL CARCINOMA
     Route: 048
     Dates: start: 20150928, end: 20151001

REACTIONS (2)
  - Drug interaction [Recovered/Resolved]
  - Pancreatitis [Recovered/Resolved]

NARRATIVE: CASE EVENT DATE: 20151001
